FAERS Safety Report 7462794-0 (Version None)
Quarter: 2011Q2

REPORT INFORMATION
  Report Type: 
  Country: None (occurrence: None)
  Receive Date: 20110506
  Receipt Date: 20110401
  Transmission Date: 20111010
  Serious: Yes (Hospitalization, Other)
  Sender: FDA-Public Use
  Company Number: US-BAYER-201036995NA

PATIENT
  Age: 50 Year
  Sex: Female
  Weight: 74.83 kg

DRUGS (9)
  1. STEROIDS [Concomitant]
     Dosage: UNK
  2. MIGRAINE HEADACHE MEDICATION [Concomitant]
     Dosage: UNK
  3. DROSPIRENONE AND ETHINYL ESTRADIOL [Suspect]
     Indication: MENORRHAGIA
     Route: 048
     Dates: start: 20090401
  4. TOPAMAX [Concomitant]
     Indication: HEADACHE
  5. YASMIN [Suspect]
     Indication: MENORRHAGIA
     Route: 048
     Dates: start: 20081001
  6. TORADOL [Concomitant]
     Dosage: UNK
  7. VICODIN [Concomitant]
     Indication: HEADACHE
  8. DEPAKOTE [Concomitant]
     Dosage: UNK
     Route: 042
  9. DILAUDID [Concomitant]
     Indication: HEADACHE
     Route: 042

REACTIONS (3)
  - PULMONARY EMBOLISM [None]
  - CEREBRAL VENOUS THROMBOSIS [None]
  - INTRACRANIAL VENOUS SINUS THROMBOSIS [None]
